FAERS Safety Report 10522832 (Version 3)
Quarter: 2014Q4

REPORT INFORMATION
  Report Type: Other
  Country: US (occurrence: US)
  Receive Date: 20141016
  Receipt Date: 20141229
  Transmission Date: 20150528
  Serious: Yes (Hospitalization, Other)
  Sender: FDA-Public Use
  Company Number: US-SHIRE-US201406813

PATIENT
  Age: 35 Year
  Sex: Female
  Weight: 65.34 kg

DRUGS (3)
  1. PREDNISONE. [Concomitant]
     Active Substance: PREDNISONE
     Indication: PRODUCT USED FOR UNKNOWN INDICATION
     Dosage: 5 MG, UNKNOWN
     Route: 065
     Dates: start: 20140902
  2. CINRYZE [Suspect]
     Active Substance: HUMAN C1-ESTERASE INHIBITOR
     Indication: HEREDITARY ANGIOEDEMA
     Dosage: 1500 UNITS, OTHER (EVERY 3 DAYS)
     Route: 042
     Dates: start: 20140825
  3. CINRYZE [Suspect]
     Active Substance: HUMAN C1-ESTERASE INHIBITOR
     Indication: PROPHYLAXIS

REACTIONS (3)
  - Prescribed overdose [Not Recovered/Not Resolved]
  - Pharyngeal oedema [Recovered/Resolved]
  - Localised oedema [Recovered/Resolved]

NARRATIVE: CASE EVENT DATE: 20140825
